FAERS Safety Report 9115006 (Version 1)
Quarter: 2013Q1

REPORT INFORMATION
  Report Type: Spontaneous
  Country: DK (occurrence: None)
  Receive Date: 20130125
  Receipt Date: 20130125
  Transmission Date: 20140127
  Serious: Yes (Hospitalization)
  Sender: FDA-Public Use
  Company Number: 2013MA000674

PATIENT
  Age: 72 Year
  Sex: Male

DRUGS (9)
  1. BUTALBITAL, ASPIRIN AND CAFFEINE TABLETS [Suspect]
     Route: 048
  2. PLAVIX (CLOPIDOGREL SULFATE) [Suspect]
     Dates: start: 20120626, end: 20120812
  3. BLINDED: PLACEBO [Concomitant]
  4. ATORVASTATIN [Concomitant]
  5. BISOPROLOL [Concomitant]
  6. FUROSEMIDE [Concomitant]
  7. PERINDOPRIL [Concomitant]
  8. GLYCERYL TRINITRATE [Concomitant]
  9. OMEPRAZOLE [Concomitant]

REACTIONS (6)
  - Iron deficiency anaemia [None]
  - Gastrooesophageal reflux disease [None]
  - Gastrointestinal telangiectasia [None]
  - Diverticulum [None]
  - Large intestine polyp [None]
  - Gastrointestinal haemorrhage [None]
